FAERS Safety Report 9866294 (Version 1)
Quarter: 2014Q1

REPORT INFORMATION
  Report Type: Spontaneous
  Country: US (occurrence: US)
  Receive Date: 20140203
  Receipt Date: 20140203
  Transmission Date: 20141002
  Serious: No
  Sender: FDA-Public Use
  Company Number: US-ALLERGAN-1318723US

PATIENT
  Age: 81 Year
  Sex: Female

DRUGS (3)
  1. RESTASIS [Suspect]
     Indication: DRY EYE
     Dosage: 2 GTT, BID
     Route: 047
     Dates: start: 201302
  2. HEART MEDICINE NOS [Concomitant]
     Indication: CARDIAC DISORDER
     Dosage: UNK
     Dates: start: 201306
  3. SYSTANE [Concomitant]
     Indication: DRY EYE
     Dosage: 2 GTT, UNK
     Route: 047

REACTIONS (1)
  - Drug ineffective [Unknown]
